FAERS Safety Report 6643718-2 (Version None)
Quarter: 2010Q1

REPORT INFORMATION
  Report Type: 
  Country: None (occurrence: None)
  Receive Date: 20100322
  Receipt Date: 20100311
  Transmission Date: 20100710
  Serious: Yes (Other)
  Sender: FDA-Public Use
  Company Number: US-BIOGENIDEC-2010BI008415

PATIENT
  Age: 50 Year
  Sex: Female

DRUGS (1)
  1. TYSABRI [Suspect]
     Indication: MULTIPLE SCLEROSIS
     Route: 042
     Dates: start: 20080818, end: 20100201

REACTIONS (5)
  - BREAST CANCER [None]
  - CATARACT [None]
  - IMPAIRED HEALING [None]
  - OSTEITIS DEFORMANS [None]
  - POST PROCEDURAL INFECTION [None]
